FAERS Safety Report 7904684-2 (Version None)
Quarter: 2011Q4

REPORT INFORMATION
  Report Type: 
  Country: None (occurrence: None)
  Receive Date: 20111109
  Receipt Date: 20111031
  Transmission Date: 20120403
  Serious: Yes (Hospitalization)
  Sender: FDA-Public Use
  Company Number: DE-GLAXOSMITHKLINE-B0752989A

PATIENT
  Sex: Female
  Weight: 87 kg

DRUGS (7)
  1. CORTICOID [Concomitant]
     Indication: RASH
     Route: 061
     Dates: start: 20110929, end: 20111005
  2. BLINDED TRIAL MEDICATION [Suspect]
     Indication: OVARIAN CANCER
     Dosage: 800MG PER DAY
     Route: 048
     Dates: start: 20110913
  3. TOPOTECAN [Suspect]
     Indication: OVARIAN CANCER
     Dosage: 1.25MG PER DAY
     Route: 042
     Dates: start: 20110912
  4. DEXAMETHASONE [Concomitant]
     Indication: NAUSEA
     Dosage: 4MG PER DAY
     Route: 042
     Dates: start: 20110929, end: 20111005
  5. ENALAPRIL MALEATE [Concomitant]
     Indication: HYPERTENSION
     Dosage: 2.5MG PER DAY
     Route: 048
     Dates: start: 20080101
  6. PANTOPRAZOLE [Concomitant]
     Indication: ILL-DEFINED DISORDER
     Dosage: 40MG PER DAY
     Route: 048
     Dates: start: 20110901
  7. METOCLOPRAMIDE [Concomitant]
     Indication: NAUSEA
     Route: 048
     Dates: start: 20110901

REACTIONS (2)
  - PALMAR-PLANTAR ERYTHRODYSAESTHESIA SYNDROME [None]
  - RASH [None]
